FAERS Safety Report 25551731 (Version 1)
Quarter: 2025Q3

REPORT INFORMATION
  Report Type: Spontaneous
  Country: US (occurrence: US)
  Receive Date: 20250714
  Receipt Date: 20250714
  Transmission Date: 20251020
  Serious: Yes (Other)
  Sender: MCGUFF PHARMACEUTICALS, INC.
  Company Number: US-McGuff Pharmaceuticals, Inc.-2180509

PATIENT
  Age: 43 Year
  Sex: Female
  Weight: 75 kg

DRUGS (5)
  1. ASCOR [Suspect]
     Active Substance: ASCORBIC ACID
     Indication: Breast cancer
     Dates: start: 20250630, end: 20250630
  2. MAGNESIUM CHLORIDE [Suspect]
     Active Substance: MAGNESIUM CHLORIDE
     Dates: start: 20250630, end: 20250630
  3. MEBENDAZOLE [Concomitant]
     Active Substance: MEBENDAZOLE
  4. IVERMECTIN [Concomitant]
     Active Substance: IVERMECTIN
  5. CALCIUM CHLORIDE [Concomitant]
     Active Substance: CALCIUM CHLORIDE

REACTIONS (1)
  - Hypersensitivity [Recovered/Resolved]

NARRATIVE: CASE EVENT DATE: 20250630
